FAERS Safety Report 22343929 (Version 1)
Quarter: 2023Q2

REPORT INFORMATION
  Report Type: Spontaneous
  Country: US (occurrence: None)
  Receive Date: 20230518
  Receipt Date: 20230518
  Transmission Date: 20230722
  Serious: Yes (Other)
  Sender: FDA-Public Use
  Company Number: None

PATIENT
  Age: 73 Year
  Sex: Male
  Weight: 92.3 kg

DRUGS (8)
  1. LEQVIO [Suspect]
     Active Substance: INCLISIRAN SODIUM
     Indication: Hyperlipidaemia
     Dosage: OTHER FREQUENCY : Q6 MONTHS;?
     Route: 058
  2. ASPIRIN [Concomitant]
     Active Substance: ASPIRIN
     Dates: start: 20170801
  3. CHOLECALCIFEROL [Concomitant]
     Active Substance: CHOLECALCIFEROL
  4. COLLAGEN [Concomitant]
     Active Substance: COLLAGEN
  5. CYANOCOBALAMIN [Concomitant]
     Active Substance: CYANOCOBALAMIN
  6. VITAMINS [Concomitant]
     Active Substance: VITAMINS
  7. CIALIS [Concomitant]
     Active Substance: TADALAFIL
  8. NITROGLYCERIN [Concomitant]
     Active Substance: NITROGLYCERIN

REACTIONS (4)
  - Mouth swelling [None]
  - Lip swelling [None]
  - Taste disorder [None]
  - Injection related reaction [None]

NARRATIVE: CASE EVENT DATE: 20230502
